FAERS Safety Report 4980627-9 (Version None)
Quarter: 2006Q2

REPORT INFORMATION
  Report Type: 
  Country: None (occurrence: None)
  Receive Date: 20060424
  Receipt Date: 20050919
  Transmission Date: 20061013
  Serious: No
  Sender: FDA-Public Use
  Company Number: US-MERCK-0509USA02976

PATIENT
  Age: 33 Year
  Sex: Male
  Weight: 100 kg

DRUGS (4)
  1. VIOXX [Suspect]
     Indication: INFLAMMATION
     Route: 048
     Dates: start: 20030101, end: 20040101
  2. VIOXX [Suspect]
     Indication: PAIN
     Route: 048
     Dates: start: 20030101, end: 20040101
  3. BEXTRA [Concomitant]
     Route: 065
  4. CELEBREX [Concomitant]
     Route: 065

REACTIONS (17)
  - CARDIAC FAILURE [None]
  - CARDIAC HYPERTROPHY [None]
  - CARDIAC VENTRICULAR DISORDER [None]
  - CEREBROVASCULAR ACCIDENT [None]
  - CHEST PAIN [None]
  - DILATATION VENTRICULAR [None]
  - GASTROINTESTINAL DISORDER [None]
  - HEPATOCELLULAR DAMAGE [None]
  - HYPERTENSIVE HEART DISEASE [None]
  - INJURY [None]
  - MYOCARDIAL FIBROSIS [None]
  - MYOCARDIAL INFARCTION [None]
  - RENAL DISORDER [None]
  - SKIN INJURY [None]
  - THROMBOSIS [None]
  - ULCER [None]
  - VENTRICULAR HYPERTROPHY [None]
